FAERS Safety Report 4755123-4 (Version None)
Quarter: 2005Q3

REPORT INFORMATION
  Report Type: 
  Country: None (occurrence: None)
  Receive Date: 20050829
  Receipt Date: 20050819
  Transmission Date: 20060218
  Serious: Yes (Death)
  Sender: FDA-Public Use
  Company Number: CA-JNJFOC-20050802299

PATIENT
  Sex: Male
  Weight: 72 kg

DRUGS (5)
  1. REMICADE [Suspect]
     Route: 042
  2. PENTASA [Concomitant]
     Route: 048
     Dates: start: 20050623, end: 20050803
  3. PREDNISONE TAB [Concomitant]
     Route: 048
     Dates: start: 20050703, end: 20050726
  4. SOLU-MEDROL [Concomitant]
  5. SOLU-MEDROL [Concomitant]

REACTIONS (6)
  - CONDITION AGGRAVATED [None]
  - DEATH [None]
  - GENERAL PHYSICAL HEALTH DETERIORATION [None]
  - HEPATIC ENZYME ABNORMAL [None]
  - PNEUMONIA [None]
  - UNEVALUABLE EVENT [None]
